FAERS Safety Report 11247338 (Version 1)
Quarter: 2015Q3

REPORT INFORMATION
  Report Type: Spontaneous
  Country: US (occurrence: None)
  Receive Date: 20150706
  Receipt Date: 20150706
  Transmission Date: 20151125
  Serious: Yes (Disabling)
  Sender: FDA-Public Use
  Company Number: None

PATIENT
  Age: 55 Year
  Sex: Male
  Weight: 65.77 kg

DRUGS (1)
  1. VISTARIL [Suspect]
     Active Substance: HYDROXYZINE PAMOATE
     Indication: INSOMNIA
     Dosage: 1 PILL-SLEEP P.M. ORAL
     Route: 048

REACTIONS (5)
  - Insomnia [None]
  - Dry mouth [None]
  - Memory impairment [None]
  - Adverse reaction [None]
  - Delusion [None]
